FAERS Safety Report 19063310 (Version 1)
Quarter: 2021Q1

REPORT INFORMATION
  Report Type: Spontaneous
  Country: US (occurrence: US)
  Receive Date: 20210326
  Receipt Date: 20210326
  Transmission Date: 20210420
  Serious: Yes (Death)
  Sender: FDA-Public Use
  Company Number: None

PATIENT
  Age: 29 Year
  Sex: Female
  Weight: 82.49 kg

DRUGS (22)
  1. FOSAPREPITANT DIMEGLUMINE. [Concomitant]
     Active Substance: FOSAPREPITANT DIMEGLUMINE
  2. VALACYCLOVIR HCL [Concomitant]
     Active Substance: VALACYCLOVIR HYDROCHLORIDE
  3. LEUCOVORIN CALCIUM. [Concomitant]
     Active Substance: LEUCOVORIN CALCIUM
  4. PROCHLORPERAZINE MALEATE. [Concomitant]
     Active Substance: PROCHLORPERAZINE MALEATE
  5. ONDANSETRON [Concomitant]
     Active Substance: ONDANSETRON
  6. CAMPTOSAR [Concomitant]
     Active Substance: IRINOTECAN HYDROCHLORIDE
  7. MORPHINE SULFATE ER [Concomitant]
     Active Substance: MORPHINE SULFATE
  8. ERLOTINIB [Suspect]
     Active Substance: ERLOTINIB
     Indication: PANCREATIC CARCINOMA
     Route: 048
     Dates: start: 20210114, end: 20210315
  9. ATROPINE SULFATE. [Concomitant]
     Active Substance: ATROPINE SULFATE
  10. GEMZAR [Concomitant]
     Active Substance: GEMCITABINE HYDROCHLORIDE
  11. ZOFRAN [Concomitant]
     Active Substance: ONDANSETRON HYDROCHLORIDE
  12. PACLITAXEL. [Concomitant]
     Active Substance: PACLITAXEL
  13. VALTREX [Concomitant]
     Active Substance: VALACYCLOVIR HYDROCHLORIDE
  14. COMPAZINE [Concomitant]
     Active Substance: PROCHLORPERAZINE MALEATE
  15. TARCEVA [Concomitant]
     Active Substance: ERLOTINIB HYDROCHLORIDE
  16. NEULASTA [Concomitant]
     Active Substance: PEGFILGRASTIM
  17. ORAMAGIC PLUS [Concomitant]
  18. OXALIPLATIN. [Concomitant]
     Active Substance: OXALIPLATIN
  19. PROTONIX [Concomitant]
     Active Substance: PANTOPRAZOLE SODIUM
  20. DECADRON [Concomitant]
     Active Substance: DEXAMETHASONE
  21. FENTANYL. [Concomitant]
     Active Substance: FENTANYL
  22. XANAX [Concomitant]
     Active Substance: ALPRAZOLAM

REACTIONS (1)
  - Death [None]

NARRATIVE: CASE EVENT DATE: 20210315
